FAERS Safety Report 6554698-2 (Version None)
Quarter: 2010Q1

REPORT INFORMATION
  Report Type: 
  Country: None (occurrence: None)
  Receive Date: 20100127
  Receipt Date: 20100118
  Transmission Date: 20100710
  Serious: Yes (Other)
  Sender: FDA-Public Use
  Company Number: US-JNJFOC-20100108006

PATIENT
  Sex: Female
  Weight: 55.34 kg

DRUGS (2)
  1. RISPERDAL [Suspect]
     Indication: MOVEMENT DISORDER
     Dosage: 1 MG/ML
     Route: 048
  2. ZYPREXA [Suspect]
     Indication: MOVEMENT DISORDER
     Route: 048

REACTIONS (6)
  - CRYING [None]
  - DEPRESSION [None]
  - FATIGUE [None]
  - OFF LABEL USE [None]
  - SUICIDAL IDEATION [None]
  - TREMOR [None]
